FAERS Safety Report 8805890 (Version 2)
Quarter: 2012Q4

REPORT INFORMATION
  Report Type: Spontaneous
  Country: US (occurrence: None)
  Receive Date: 20120917
  Receipt Date: 20121218
  Transmission Date: 20130627
  Serious: Yes (Death, Hospitalization)
  Sender: FDA-Public Use
  Company Number: 2012-0830

PATIENT
  Age: 61 Year
  Sex: Female

DRUGS (7)
  1. KYPROLIS [Suspect]
     Indication: MULTIPLE MYELOMA
     Route: 042
     Dates: start: 20120815, end: 20120816
  2. ACYCLOVIR [Concomitant]
  3. DEXAMETHASONE [Concomitant]
  4. NORCO 10/325 (PARACETAMOL) (PARACETAMOL) [Concomitant]
  5. OXYCONTIN (OXYCODONE HYDROCHLORIDE) (OXYCODONE HYDROCHLORIDE) [Concomitant]
  6. GABAPENTIN (GABAPENTIN) (GABAPENTIN) [Concomitant]
  7. XANAX (ALPRAZOLAM) (ALPRAZOLAM) [Concomitant]

REACTIONS (4)
  - Abdominal pain [None]
  - Pyrexia [None]
  - Clostridium difficile colitis [None]
  - Plasma cell myeloma [None]
